FAERS Safety Report 21610748 (Version 1)
Quarter: 2022Q4

REPORT INFORMATION
  Report Type: Spontaneous
  Country: FR (occurrence: None)
  Receive Date: 20221117
  Receipt Date: 20221117
  Transmission Date: 20230112
  Serious: Yes (Hospitalization)
  Sender: FDA-Public Use
  Company Number: FR-ROCHE-3219436

PATIENT
  Age: 82 Year
  Sex: Male
  Weight: 81 kg

DRUGS (3)
  1. CAPECITABINE [Suspect]
     Active Substance: CAPECITABINE
     Indication: Adenocarcinoma of colon
     Route: 048
     Dates: end: 20211017
  2. COMIRNATY [Suspect]
     Active Substance: TOZINAMERAN
     Indication: COVID-19 immunisation
     Dosage: 1 DF
     Route: 030
     Dates: start: 20211011, end: 20211011
  3. COMIRNATY [Suspect]
     Active Substance: TOZINAMERAN
     Dosage: 1 DF
     Route: 030
     Dates: start: 20210304, end: 20210331

REACTIONS (3)
  - Arthritis [Recovered/Resolved]
  - Cholecystitis [Recovered/Resolved]
  - Deep vein thrombosis [Recovered/Resolved]

NARRATIVE: CASE EVENT DATE: 20211027
